FAERS Safety Report 11134757 (Version 1)
Quarter: 2015Q2

REPORT INFORMATION
  Report Type: Spontaneous
  Country: US (occurrence: US)
  Receive Date: 20150525
  Receipt Date: 20150525
  Transmission Date: 20150821
  Serious: No
  Sender: FDA-Public Use
  Company Number: US-BIOGENIDEC-2015BI069564

PATIENT
  Age: 47 Year
  Sex: Female

DRUGS (1)
  1. TYSABRI [Suspect]
     Active Substance: NATALIZUMAB
     Indication: MULTIPLE SCLEROSIS
     Route: 042
     Dates: start: 20120816

REACTIONS (10)
  - General symptom [Unknown]
  - Mental disorder [Unknown]
  - Speech disorder [Not Recovered/Not Resolved]
  - Abnormal behaviour [Recovered/Resolved]
  - Abnormal behaviour [Unknown]
  - Psychomotor hyperactivity [Unknown]
  - General physical health deterioration [Not Recovered/Not Resolved]
  - Speech disorder [Unknown]
  - Agitation [Unknown]
  - Incoherent [Unknown]

NARRATIVE: CASE EVENT DATE: 20150512
